FAERS Safety Report 23023521 (Version 2)
Quarter: 2023Q4

REPORT INFORMATION
  Report Type: Spontaneous
  Country: PL (occurrence: PL)
  Receive Date: 20231003
  Receipt Date: 20231012
  Transmission Date: 20240109
  Serious: Yes (Death, Other)
  Sender: FDA-Public Use
  Company Number: PL-SANDOZ-SDZ2023PL033384

PATIENT
  Age: 49 Year
  Sex: Male

DRUGS (65)
  1. DEXAMETHASONE [Suspect]
     Active Substance: DEXAMETHASONE
     Indication: Diffuse large B-cell lymphoma
     Dosage: UNK
     Route: 065
     Dates: start: 20220607, end: 20220609
  2. DEXAMETHASONE [Suspect]
     Active Substance: DEXAMETHASONE
     Dosage: UNK
     Route: 065
     Dates: start: 20220702, end: 20220704
  3. POLATUZUMAB VEDOTIN [Suspect]
     Active Substance: POLATUZUMAB VEDOTIN
     Indication: Diffuse large B-cell lymphoma
     Route: 065
  4. KYMRIAH [Suspect]
     Active Substance: TISAGENLECLEUCEL
     Indication: Diffuse large B-cell lymphoma
     Dosage: UNK
     Route: 065
     Dates: start: 20221207
  5. DOXORUBICIN [Suspect]
     Active Substance: DOXORUBICIN
     Indication: Diffuse large B-cell lymphoma
     Dosage: 2ND CYCLE
     Route: 065
     Dates: start: 20210105, end: 20210106
  6. DOXORUBICIN [Suspect]
     Active Substance: DOXORUBICIN
     Dosage: 6TH CYCLE
     Route: 065
     Dates: start: 20210406, end: 20210407
  7. DOXORUBICIN [Suspect]
     Active Substance: DOXORUBICIN
     Dosage: 5TH CYCLE
     Route: 065
     Dates: start: 20210315, end: 20210316
  8. DOXORUBICIN [Suspect]
     Active Substance: DOXORUBICIN
     Dosage: 4TH CYCLE
     Route: 065
     Dates: start: 20210219, end: 20210220
  9. DOXORUBICIN [Suspect]
     Active Substance: DOXORUBICIN
     Dosage: 3RD CYCLE
     Route: 065
     Dates: start: 20210129, end: 20210130
  10. DOXORUBICIN [Suspect]
     Active Substance: DOXORUBICIN
     Dosage: 7TH CYCLE
     Route: 065
     Dates: start: 20210429
  11. DOXORUBICIN [Suspect]
     Active Substance: DOXORUBICIN
     Dosage: 8TH CYCLE
     Route: 065
     Dates: start: 20210520, end: 20210521
  12. DOXORUBICIN [Suspect]
     Active Substance: DOXORUBICIN
     Dosage: 1ST CYCLE
     Route: 065
     Dates: start: 20201215, end: 20201218
  13. DOXORUBICIN [Suspect]
     Active Substance: DOXORUBICIN
     Route: 065
     Dates: start: 20211005, end: 20211006
  14. RITUXIMAB [Suspect]
     Active Substance: RITUXIMAB
     Indication: Diffuse large B-cell lymphoma
     Dosage: UNK
     Route: 065
     Dates: start: 20220607, end: 20220609
  15. RITUXIMAB [Suspect]
     Active Substance: RITUXIMAB
     Dosage: 7TH CYCLE
     Route: 065
     Dates: start: 20210429
  16. RITUXIMAB [Suspect]
     Active Substance: RITUXIMAB
     Dosage: 6TH CYCLE
     Route: 065
     Dates: start: 20210406, end: 20210407
  17. RITUXIMAB [Suspect]
     Active Substance: RITUXIMAB
     Dosage: 5TH CYCLE
     Route: 065
     Dates: start: 20210315, end: 20210316
  18. RITUXIMAB [Suspect]
     Active Substance: RITUXIMAB
     Dosage: 1ST CYCLE
     Route: 065
     Dates: start: 20201215, end: 20201218
  19. RITUXIMAB [Suspect]
     Active Substance: RITUXIMAB
     Dosage: UNK
     Route: 065
     Dates: start: 20220702, end: 20220704
  20. RITUXIMAB [Suspect]
     Active Substance: RITUXIMAB
     Dosage: 8TH CYCLE
     Route: 065
     Dates: start: 20210520, end: 20210521
  21. RITUXIMAB [Suspect]
     Active Substance: RITUXIMAB
     Dosage: 2ND CYCLE
     Route: 065
     Dates: start: 20210105, end: 20210106
  22. RITUXIMAB [Suspect]
     Active Substance: RITUXIMAB
     Dosage: 4TH CYCLE
     Route: 065
     Dates: start: 20210219, end: 20210220
  23. RITUXIMAB [Suspect]
     Active Substance: RITUXIMAB
     Dosage: UNK
     Route: 065
     Dates: start: 20220916, end: 20220918
  24. RITUXIMAB [Suspect]
     Active Substance: RITUXIMAB
     Dosage: UNK
     Route: 065
     Dates: start: 20221007, end: 20221008
  25. RITUXIMAB [Suspect]
     Active Substance: RITUXIMAB
     Dosage: 3RD CYCLE
     Route: 065
     Dates: start: 20210129, end: 20210130
  26. RITUXIMAB [Suspect]
     Active Substance: RITUXIMAB
     Dosage: UNK
     Route: 065
     Dates: start: 20221127, end: 20221129
  27. BENDAMUSTINE [Suspect]
     Active Substance: BENDAMUSTINE
     Indication: Diffuse large B-cell lymphoma
     Dosage: UNK
     Route: 065
     Dates: start: 20220916, end: 20220918
  28. BENDAMUSTINE [Suspect]
     Active Substance: BENDAMUSTINE
     Dosage: UNK
     Route: 065
     Dates: start: 20221007, end: 20221008
  29. BENDAMUSTINE [Suspect]
     Active Substance: BENDAMUSTINE
     Dosage: UNK
     Route: 065
     Dates: start: 20221127, end: 20221128
  30. PREDNISONE [Suspect]
     Active Substance: PREDNISONE
     Indication: Diffuse large B-cell lymphoma
     Dosage: 8TH CYCLE
     Route: 065
     Dates: start: 20210520, end: 20210521
  31. PREDNISONE [Suspect]
     Active Substance: PREDNISONE
     Dosage: 6TH CYCLE
     Route: 065
     Dates: start: 20210406, end: 20210407
  32. PREDNISONE [Suspect]
     Active Substance: PREDNISONE
     Dosage: 1ST CYCLE
     Route: 065
     Dates: start: 20201215, end: 20201218
  33. PREDNISONE [Suspect]
     Active Substance: PREDNISONE
     Dosage: 4TH CYCLE
     Route: 065
     Dates: start: 20210219, end: 20210220
  34. PREDNISONE [Suspect]
     Active Substance: PREDNISONE
     Dosage: 2ND CYCLE
     Route: 065
     Dates: start: 20210105, end: 20210106
  35. PREDNISONE [Suspect]
     Active Substance: PREDNISONE
     Dosage: 7TH CYCLE
     Route: 065
     Dates: start: 20210429
  36. PREDNISONE [Suspect]
     Active Substance: PREDNISONE
     Dosage: 5TH CYCLE
     Route: 065
     Dates: start: 20210315, end: 20210316
  37. PREDNISONE [Suspect]
     Active Substance: PREDNISONE
     Dosage: 3RD CYCLE
     Route: 065
     Dates: start: 20210129, end: 20210130
  38. CISPLATIN [Suspect]
     Active Substance: CISPLATIN
     Indication: Diffuse large B-cell lymphoma
     Dosage: UNK
     Route: 065
     Dates: start: 20220607, end: 20220609
  39. CISPLATIN [Suspect]
     Active Substance: CISPLATIN
     Dosage: UNK
     Route: 065
     Dates: start: 20220702, end: 20220704
  40. VINCRISTINE [Suspect]
     Active Substance: VINCRISTINE
     Indication: Diffuse large B-cell lymphoma
     Dosage: 2ND CYCLE
     Route: 065
     Dates: start: 20210105, end: 20210106
  41. VINCRISTINE [Suspect]
     Active Substance: VINCRISTINE
     Dosage: 8TH CYCLE
     Route: 065
     Dates: start: 20210520, end: 20210521
  42. VINCRISTINE [Suspect]
     Active Substance: VINCRISTINE
     Dosage: 6TH CYCLE
     Route: 065
     Dates: start: 20210406, end: 20210407
  43. VINCRISTINE [Suspect]
     Active Substance: VINCRISTINE
     Dosage: 7TH CYCLE
     Route: 065
     Dates: start: 20210429
  44. VINCRISTINE [Suspect]
     Active Substance: VINCRISTINE
     Dosage: 1ST CYCLE
     Route: 065
     Dates: start: 20201215, end: 20201218
  45. VINCRISTINE [Suspect]
     Active Substance: VINCRISTINE
     Dosage: 4THC CYCLE
     Route: 065
     Dates: start: 20210219, end: 20210220
  46. VINCRISTINE [Suspect]
     Active Substance: VINCRISTINE
     Dosage: 3RD CYCLE
     Route: 065
     Dates: start: 20210129, end: 20210130
  47. VINCRISTINE [Suspect]
     Active Substance: VINCRISTINE
     Dosage: 5TH CYCLE
     Route: 065
     Dates: start: 20210315, end: 20210316
  48. CYTARABINE [Suspect]
     Active Substance: CYTARABINE
     Indication: Diffuse large B-cell lymphoma
     Dosage: UNK
     Route: 065
     Dates: start: 20220702, end: 20220704
  49. CYTARABINE [Suspect]
     Active Substance: CYTARABINE
     Dosage: UNK
     Route: 065
     Dates: start: 20220607, end: 20220609
  50. CYCLOPHOSPHAMIDE [Suspect]
     Active Substance: CYCLOPHOSPHAMIDE
     Indication: Diffuse large B-cell lymphoma
     Dosage: 7TH CYCLE
     Route: 065
     Dates: start: 20210429
  51. CYCLOPHOSPHAMIDE [Suspect]
     Active Substance: CYCLOPHOSPHAMIDE
     Dosage: 3RD CYCLE
     Route: 065
     Dates: start: 20210129, end: 20210130
  52. CYCLOPHOSPHAMIDE [Suspect]
     Active Substance: CYCLOPHOSPHAMIDE
     Dosage: 5TH CYCLE
     Route: 065
     Dates: start: 20210315, end: 20210316
  53. CYCLOPHOSPHAMIDE [Suspect]
     Active Substance: CYCLOPHOSPHAMIDE
     Dosage: 2ND CYCLE
     Route: 065
     Dates: start: 20210105, end: 20210106
  54. CYCLOPHOSPHAMIDE [Suspect]
     Active Substance: CYCLOPHOSPHAMIDE
     Dosage: 1ST CYCLE
     Route: 065
     Dates: start: 20201215, end: 20201218
  55. CYCLOPHOSPHAMIDE [Suspect]
     Active Substance: CYCLOPHOSPHAMIDE
     Dosage: 4TH CYCLE
     Route: 065
     Dates: start: 20210219, end: 20210220
  56. CYCLOPHOSPHAMIDE [Suspect]
     Active Substance: CYCLOPHOSPHAMIDE
     Dosage: 8TH CYCLE
     Route: 065
     Dates: start: 20210520, end: 20210521
  57. CYCLOPHOSPHAMIDE [Suspect]
     Active Substance: CYCLOPHOSPHAMIDE
     Dosage: 6TH CYCLE
     Route: 065
     Dates: start: 20210406, end: 20210407
  58. METHOTREXATE [Suspect]
     Active Substance: METHOTREXATE
     Indication: Diffuse large B-cell lymphoma
     Dosage: 8TH CYCLE
     Route: 065
     Dates: start: 20210520, end: 20210521
  59. METHOTREXATE [Suspect]
     Active Substance: METHOTREXATE
     Dosage: 2ND CYCLE
     Route: 065
     Dates: start: 20210105, end: 20210106
  60. METHOTREXATE [Suspect]
     Active Substance: METHOTREXATE
     Dosage: 7TH CYCLE
     Route: 065
     Dates: start: 20210429
  61. METHOTREXATE [Suspect]
     Active Substance: METHOTREXATE
     Dosage: 6TH CYCLE
     Route: 065
     Dates: start: 20210406, end: 20210407
  62. METHOTREXATE [Suspect]
     Active Substance: METHOTREXATE
     Dosage: 4TH CYCLE
     Route: 065
     Dates: start: 20210219, end: 20210220
  63. METHOTREXATE [Suspect]
     Active Substance: METHOTREXATE
     Dosage: 5TH CYCLE
     Route: 065
     Dates: start: 20210315, end: 20210316
  64. METHOTREXATE [Suspect]
     Active Substance: METHOTREXATE
     Dosage: 3RD CYCLE
     Route: 065
     Dates: start: 20210129, end: 20210130
  65. METHOTREXATE [Suspect]
     Active Substance: METHOTREXATE
     Dosage: 1ST CYCLE
     Route: 065
     Dates: start: 20201215, end: 20201218

REACTIONS (4)
  - Death [Fatal]
  - Immune effector cell-associated neurotoxicity syndrome [Recovered/Resolved]
  - Diffuse large B-cell lymphoma recurrent [Unknown]
  - Thrombocytopenia [Unknown]

NARRATIVE: CASE EVENT DATE: 20230408
